FAERS Safety Report 15267994 (Version 1)
Quarter: 2018Q3

REPORT INFORMATION
  Report Type: Spontaneous
  Country: US (occurrence: US)
  Receive Date: 20180725
  Receipt Date: 20180725
  Transmission Date: 20181010
  Serious: Yes (Hospitalization)
  Sender: FDA-Public Use
  Company Number: None

PATIENT
  Age: 53 Year
  Sex: Male

DRUGS (17)
  1. VALIUM [Concomitant]
     Active Substance: DIAZEPAM
     Dates: start: 20171114
  2. FOLIC ACID. [Concomitant]
     Active Substance: FOLIC ACID
     Dates: start: 20180327
  3. GABAPENTIN. [Concomitant]
     Active Substance: GABAPENTIN
     Dates: start: 20171114
  4. INVOKANA [Concomitant]
     Active Substance: CANAGLIFLOZIN
     Dates: start: 20180626
  5. JANUMET [Concomitant]
     Active Substance: METFORMIN HYDROCHLORIDE\SITAGLIPTIN PHOSPHATE
     Dates: start: 20180427
  6. RANITIDINE. [Concomitant]
     Active Substance: RANITIDINE
     Dates: start: 20180430
  7. GLIPIZIDE ER [Concomitant]
     Active Substance: GLIPIZIDE
     Dates: start: 20180611
  8. IBUPROFEN. [Concomitant]
     Active Substance: IBUPROFEN
     Dates: start: 20180717
  9. LOSARTAN POT [Concomitant]
     Active Substance: LOSARTAN POTASSIUM
     Dates: start: 20180416
  10. TOYJEO SOLO [Concomitant]
     Dates: start: 20180521
  11. VICTOZA [Concomitant]
     Active Substance: LIRAGLUTIDE
     Dates: start: 20180301
  12. HUMIRA [Suspect]
     Active Substance: ADALIMUMAB
     Indication: RHEUMATOID ARTHRITIS
     Dosage: ?          OTHER FREQUENCY:EVERY 14 DAYS;?
     Route: 058
     Dates: start: 20180324
  13. DIAZEPAM. [Concomitant]
     Active Substance: DIAZEPAM
     Dates: start: 20180608
  14. OXYCODONE [Concomitant]
     Active Substance: OXYCODONE
     Dates: start: 20180717
  15. FREESTYLE KIT SENSOR [Concomitant]
     Dates: start: 20180615
  16. ENBREL [Suspect]
     Active Substance: ETANERCEPT
     Indication: RHEUMATOID ARTHRITIS
     Dosage: ?          OTHER FREQUENCY:EVERY WEEK;?
     Route: 058
     Dates: start: 20170929
  17. OMEPRAZOLE. [Concomitant]
     Active Substance: OMEPRAZOLE
     Dates: start: 20180228

REACTIONS (3)
  - Drug ineffective [None]
  - Abdominal hernia [None]
  - Umbilical hernia [None]
